FAERS Safety Report 20696182 (Version 1)
Quarter: 2022Q2

REPORT INFORMATION
  Report Type: Spontaneous
  Country: PT (occurrence: PT)
  Receive Date: 20220411
  Receipt Date: 20220411
  Transmission Date: 20220721
  Serious: Yes (Other)
  Sender: FDA-Public Use
  Company Number: None

PATIENT

DRUGS (3)
  1. METRONIDAZOLE [Suspect]
     Active Substance: METRONIDAZOLE
     Indication: Dermo-hypodermitis
     Dosage: 1 DOSAGE FORM
     Route: 065
     Dates: start: 20160810, end: 20160822
  2. CEFAZOLINA [CEFAZOLIN] [Concomitant]
     Indication: Dermo-hypodermitis
     Dosage: UNK
     Route: 065
     Dates: start: 20160810, end: 20160822
  3. CLINDAMICINA [CLINDAMYCIN] [Concomitant]
     Indication: Dermo-hypodermitis
     Dosage: UNK
     Route: 065
     Dates: start: 20160810, end: 20160822

REACTIONS (4)
  - Rash [Recovered/Resolved]
  - Rash morbilliform [Recovered/Resolved]
  - Rash pruritic [Recovered/Resolved]
  - Product use in unapproved indication [Recovered/Resolved]

NARRATIVE: CASE EVENT DATE: 20160810
